FAERS Safety Report 25598605 (Version 3)
Quarter: 2025Q4

REPORT INFORMATION
  Report Type: Spontaneous
  Country: US (occurrence: US)
  Receive Date: 20250723
  Receipt Date: 20251002
  Transmission Date: 20260117
  Serious: Yes (Hospitalization, Other)
  Sender: SANOFI AVENTIS
  Company Number: US-SA-2025SA209057

PATIENT
  Age: 48 Year
  Sex: Female

DRUGS (3)
  1. DUPIXENT [Suspect]
     Active Substance: DUPILUMAB
     Indication: Asthma
     Dosage: 600 MG, 1X
     Route: 058
     Dates: start: 20250704, end: 20250704
  2. DUPIXENT [Suspect]
     Active Substance: DUPILUMAB
     Dosage: 300 MG, QOW
     Route: 058
     Dates: start: 20250718
  3. SULFASALAZINE [Suspect]
     Active Substance: SULFASALAZINE
     Dosage: UNK
     Dates: end: 202507

REACTIONS (21)
  - Pneumonia viral [Unknown]
  - Parainfluenzae virus infection [Unknown]
  - Blood lactic acid increased [Unknown]
  - Rheumatoid arthritis [Unknown]
  - Immunodeficiency [Unknown]
  - Sleep disorder due to a general medical condition [Unknown]
  - Asthma [Not Recovered/Not Resolved]
  - Dyspnoea [Not Recovered/Not Resolved]
  - Oxygen saturation decreased [Not Recovered/Not Resolved]
  - Chest discomfort [Not Recovered/Not Resolved]
  - Wheezing [Not Recovered/Not Resolved]
  - Pulmonary mass [Unknown]
  - Aphonia [Unknown]
  - Lung opacity [Unknown]
  - Lymphadenopathy [Unknown]
  - Rhinorrhoea [Recovered/Resolved]
  - Headache [Unknown]
  - Vertigo [Unknown]
  - Dizziness [Unknown]
  - Injection site pain [Recovered/Resolved]
  - Drug ineffective [Unknown]

NARRATIVE: CASE EVENT DATE: 20250101
